FAERS Safety Report 5775116-8 (Version None)
Quarter: 2008Q2

REPORT INFORMATION
  Report Type: 
  Country: None (occurrence: None)
  Receive Date: 20080616
  Receipt Date: 20080616
  Transmission Date: 20081010
  Serious: Yes (Life-Threatening)
  Sender: FDA-Public Use
  Company Number: None

PATIENT
  Sex: Female
  Weight: 67.1324 kg

DRUGS (2)
  1. PROVIGIL [Suspect]
     Indication: FATIGUE
     Dosage: 200 MG ONCE DAILY PO
     Route: 048
     Dates: start: 20050201, end: 20080501
  2. PROVIGIL [Suspect]
     Indication: NARCOLEPSY
     Dosage: 200 MG ONCE DAILY PO
     Route: 048
     Dates: start: 20050201, end: 20080501

REACTIONS (16)
  - ABNORMAL BEHAVIOUR [None]
  - ACTIVITIES OF DAILY LIVING IMPAIRED [None]
  - ANGER [None]
  - ANHEDONIA [None]
  - APATHY [None]
  - FATIGUE [None]
  - FEELING ABNORMAL [None]
  - INITIAL INSOMNIA [None]
  - LIBIDO DECREASED [None]
  - MENSTRUAL DISORDER [None]
  - MENTAL IMPAIRMENT [None]
  - MIGRAINE [None]
  - NERVOUS SYSTEM DISORDER [None]
  - PAIN [None]
  - SLEEP DISORDER [None]
  - SUICIDAL IDEATION [None]
